FAERS Safety Report 7241859-2 (Version None)
Quarter: 2011Q1

REPORT INFORMATION
  Report Type: 
  Country: None (occurrence: None)
  Receive Date: 20110124
  Receipt Date: 20110119
  Transmission Date: 20110831
  Serious: Yes (Hospitalization)
  Sender: FDA-Public Use
  Company Number: ZA-PFIZER INC-2011013742

PATIENT
  Age: 13 Year
  Sex: Female
  Weight: 40 kg

DRUGS (2)
  1. TYGACIL [Suspect]
     Dosage: 400 MG, SINGLE (STAT)
     Route: 042
     Dates: start: 20110101, end: 20110101
  2. TYGACIL [Suspect]
     Dosage: 100 MG, 2X/DAY (BD)
     Route: 042
     Dates: start: 20110101

REACTIONS (4)
  - DISORIENTATION [None]
  - HYPERTENSION [None]
  - SEPSIS [None]
  - SEPTIC SHOCK [None]
